FAERS Safety Report 8632277 (Version 4)
Quarter: 2014Q1

REPORT INFORMATION
  Report Type: Spontaneous
  Country: US (occurrence: US)
  Receive Date: 20120625
  Receipt Date: 20140218
  Transmission Date: 20141002
  Serious: Yes (Hospitalization, Other)
  Sender: FDA-Public Use
  Company Number: US-JNJFOC-20120607727

PATIENT
  Age: 64 Year
  Sex: Male
  Weight: 68 kg

DRUGS (14)
  1. REMICADE [Suspect]
     Indication: CROHN^S DISEASE
     Route: 042
     Dates: start: 20120613, end: 20120614
  2. REMICADE [Suspect]
     Indication: CROHN^S DISEASE
     Route: 042
  3. REMICADE [Suspect]
     Indication: CROHN^S DISEASE
     Route: 042
     Dates: start: 2011
  4. IRON [Concomitant]
     Indication: ANAEMIA
     Route: 065
     Dates: start: 20120820
  5. HYDROCORTISONE [Concomitant]
     Indication: PREMEDICATION
     Route: 042
     Dates: start: 20120613
  6. TAMSULOSIN [Concomitant]
     Indication: BENIGN PROSTATIC HYPERPLASIA
     Route: 065
     Dates: start: 201204
  7. CANASA [Concomitant]
     Route: 065
  8. IMODIUM [Concomitant]
     Route: 065
  9. SOLU CORTEF [Concomitant]
     Indication: PREMEDICATION
     Route: 042
     Dates: start: 20120613
  10. PREDNISONE [Concomitant]
     Indication: CROHN^S DISEASE
     Route: 065
  11. ZYRTEC [Concomitant]
     Indication: SEASONAL ALLERGY
     Route: 065
  12. IMODIUM [Concomitant]
     Indication: CROHN^S DISEASE
     Route: 065
     Dates: start: 20120820
  13. CANASA [Concomitant]
     Indication: CROHN^S DISEASE
     Route: 065
     Dates: start: 20120625
  14. MEFENACID [Concomitant]
     Indication: CROHN^S DISEASE
     Route: 065

REACTIONS (14)
  - Haemorrhage intracranial [Unknown]
  - Leukocytosis [Unknown]
  - Dehydration [Unknown]
  - Cerebrovascular accident [Recovering/Resolving]
  - Infusion related reaction [Unknown]
  - Hemiparesis [Unknown]
  - Chills [Recovered/Resolved]
  - Tachycardia [Recovered/Resolved]
  - Flushing [Recovered/Resolved]
  - Torticollis [Recovered/Resolved]
  - Impaired healing [Recovering/Resolving]
  - Hernia [Unknown]
  - Chest pain [Recovered/Resolved]
  - Drug ineffective [Unknown]
